FAERS Safety Report 4580116-X (Version None)
Quarter: 2005Q1

REPORT INFORMATION
  Report Type: 
  Country: None (occurrence: None)
  Receive Date: 20050210
  Receipt Date: 20050204
  Transmission Date: 20050727
  Serious: Yes (Hospitalization)
  Sender: FDA-Public Use
  Company Number: 2004AP06276

PATIENT
  Age: 93 Year
  Sex: Female

DRUGS (15)
  1. CRESTOR [Suspect]
     Dosage: 10 MG DAILY PO
     Route: 048
     Dates: start: 20040820, end: 20041213
  2. INSULIN [Concomitant]
  3. LANOXIN [Concomitant]
  4. NESIUM [Concomitant]
  5. KETOSTERIL [Concomitant]
  6. PLAVIX [Concomitant]
  7. DILZEM ^ELAN^ [Concomitant]
  8. MOTILIUM [Concomitant]
  9. FISH OIL [Concomitant]
  10. CALCIUM CARBONATE [Concomitant]
  11. AZUPAMIL [Concomitant]
  12. LASIX [Concomitant]
  13. LIPANTHYL ^BRISTOL-MYERS SQUIBB^ [Concomitant]
  14. GEMFIBROZIL [Concomitant]
  15. LIPITOR [Concomitant]

REACTIONS (3)
  - RENAL FAILURE ACUTE [None]
  - RENAL INJURY [None]
  - RHABDOMYOLYSIS [None]
